FAERS Safety Report 19169040 (Version 1)
Quarter: 2021Q2

REPORT INFORMATION
  Report Type: Spontaneous
  Country: DE (occurrence: DE)
  Receive Date: 20210422
  Receipt Date: 20210422
  Transmission Date: 20210717
  Serious: Yes (Other)
  Sender: FDA-Public Use
  Company Number: DE-TEVA-2021-DE-1902929

PATIENT
  Age: 1 Day
  Sex: Male

DRUGS (2)
  1. BISOPROLOL?RATIOPHARM 5 [Suspect]
     Active Substance: BISOPROLOL FUMARATE
     Indication: HYPERTENSION
     Dosage: 5 MILLIGRAM DAILY; 2 SEPARATED DOSES
     Route: 064
     Dates: start: 20200203, end: 20201113
  2. ASCOTOP 5 MG/DOSIS NASENSPRAY [Concomitant]
     Indication: MIGRAINE
     Dosage: 5 [MG/D ]/ IF REQUIRED , UNIT DOSE : 5 MG
     Route: 064

REACTIONS (2)
  - Small for dates baby [Recovering/Resolving]
  - Foetal exposure during pregnancy [Unknown]

NARRATIVE: CASE EVENT DATE: 20200203
